FAERS Safety Report 22538775 (Version 1)
Quarter: 2023Q2

REPORT INFORMATION
  Report Type: Spontaneous
  Country: FR (occurrence: FR)
  Receive Date: 20230609
  Receipt Date: 20230609
  Transmission Date: 20230721
  Serious: Yes (Hospitalization)
  Sender: FDA-Public Use
  Company Number: FR-HALEON-FRCH2023EME027228

PATIENT

DRUGS (1)
  1. NICOTINE [Suspect]
     Active Substance: NICOTINE
     Indication: Product used for unknown indication
     Dosage: 300 ML
     Route: 062

REACTIONS (14)
  - Tobacco poisoning [Recovering/Resolving]
  - Dizziness [Recovering/Resolving]
  - Nausea [Recovering/Resolving]
  - Headache [Recovering/Resolving]
  - Application site pain [Recovering/Resolving]
  - Abdominal pain [Recovering/Resolving]
  - Vomiting [Recovering/Resolving]
  - Chills [Recovering/Resolving]
  - Salivary hypersecretion [Recovering/Resolving]
  - Pupillary disorder [Recovering/Resolving]
  - Tenderness [Recovering/Resolving]
  - Gastrointestinal sounds abnormal [Recovering/Resolving]
  - Respiratory alkalosis [Recovering/Resolving]
  - Accidental exposure to product [Recovering/Resolving]
